FAERS Safety Report 14074660 (Version 2)
Quarter: 2017Q4

REPORT INFORMATION
  Report Type: Spontaneous
  Country: PE (occurrence: PE)
  Receive Date: 20171010
  Receipt Date: 20171020
  Transmission Date: 20180321
  Serious: Yes (Other)
  Sender: FDA-Public Use
  Company Number: PHHY2017PE146797

PATIENT
  Sex: Female

DRUGS (1)
  1. TOBI PODHALER [Suspect]
     Active Substance: TOBRAMYCIN
     Indication: PSEUDOMONAS INFECTION
     Dosage: 28 MG, UNK
     Route: 065

REACTIONS (4)
  - Choking [Recovering/Resolving]
  - Discomfort [Recovering/Resolving]
  - Asthma [Recovering/Resolving]
  - Lung disorder [Recovering/Resolving]
